FAERS Safety Report 6511150-8 (Version None)
Quarter: 2009Q4

REPORT INFORMATION
  Report Type: 
  Country: None (occurrence: None)
  Receive Date: 20091217
  Receipt Date: 20091203
  Transmission Date: 20100525
  Serious: Yes (Life-Threatening, Hospitalization)
  Sender: FDA-Public Use
  Company Number: 020609183A

PATIENT
  Sex: Female

DRUGS (1)
  1. PREVIDENT 5000 BOOSTER TOOTHPASTE, SPEARMINT, RXONLY [Suspect]
     Indication: DENTAL CARE
     Dosage: ORAL, ONE USE
     Route: 048

REACTIONS (5)
  - ANGIOEDEMA [None]
  - DYSPNOEA [None]
  - EYE PRURITUS [None]
  - SPEECH DISORDER [None]
  - THROAT TIGHTNESS [None]
